FAERS Safety Report 6903949-0 (Version None)
Quarter: 2010Q3

REPORT INFORMATION
  Report Type: 
  Country: None (occurrence: None)
  Receive Date: 20100804
  Receipt Date: 20090211
  Transmission Date: 20110219
  Serious: Yes (Other)
  Sender: FDA-Public Use
  Company Number: US-PFIZER INC-2008100988

PATIENT
  Sex: Male
  Weight: 80.272 kg

DRUGS (4)
  1. LYRICA [Suspect]
     Indication: SPINAL COLUMN STENOSIS
     Dosage: 75 MG, 2X/DAY
  2. LYRICA [Suspect]
     Indication: NEURALGIA
  3. CADUET [Suspect]
     Indication: HYPERTENSION
     Dosage: 10MG/ 10MG
  4. CADUET [Suspect]
     Indication: LIPIDS

REACTIONS (1)
  - OEDEMA PERIPHERAL [None]
